FAERS Safety Report 6112224-6 (Version None)
Quarter: 2009Q1

REPORT INFORMATION
  Report Type: 
  Country: None (occurrence: None)
  Receive Date: 20090310
  Receipt Date: 20090302
  Transmission Date: 20090719
  Serious: Yes (Death)
  Sender: FDA-Public Use
  Company Number: 2007JP005087

PATIENT
  Age: 66 Year
  Sex: Female

DRUGS (9)
  1. PROGRAF [Suspect]
     Indication: RHEUMATOID ARTHRITIS
     Dosage: 3 MG, UID/QD, ORAL
     Route: 048
     Dates: start: 20071016, end: 20071030
  2. PREDNISOLONE [Concomitant]
     Indication: RHEUMATOID ARTHRITIS
     Dosage: 11.7 MG, TID, ORAL
     Route: 048
     Dates: start: 20071004, end: 20071024
  3. PREDNISOLONE [Concomitant]
     Indication: RHEUMATOID ARTHRITIS
     Dosage: 11.7 MG, TID, ORAL
     Route: 048
     Dates: start: 20071025
  4. LANSOPRAZOLE [Concomitant]
  5. BAKTAR (SULFAMETHOXAZOLE, TRIMETHOPRIM) TABLET [Concomitant]
  6. FUNGIZONE [Concomitant]
  7. LEVOTHYROXINE SODIUM [Concomitant]
  8. BONALON (ALENDRONIC ACID) [Concomitant]
  9. ETANERCEPT (ETANERCEPT) [Concomitant]

REACTIONS (6)
  - CARDIO-RESPIRATORY ARREST [None]
  - CYTOMEGALOVIRUS INFECTION [None]
  - PULMONARY ALVEOLAR HAEMORRHAGE [None]
  - PULMONARY CONGESTION [None]
  - THROMBOTIC MICROANGIOPATHY [None]
  - VENTRICULAR FIBRILLATION [None]
